FAERS Safety Report 5403801-6 (Version None)
Quarter: 2007Q3

REPORT INFORMATION
  Report Type: 
  Country: None (occurrence: None)
  Receive Date: 20070802
  Receipt Date: 20070723
  Transmission Date: 20080115
  Serious: Yes (Hospitalization, Disabling)
  Sender: FDA-Public Use
  Company Number: FR-AMGEN-UK228582

PATIENT
  Sex: Female

DRUGS (13)
  1. ARANESP [Suspect]
     Indication: RENAL FAILURE CHRONIC
     Route: 042
     Dates: start: 20060126
  2. IRBESARTAN [Concomitant]
  3. FOSINOPRIL SODIUM [Concomitant]
  4. ALFACALCIDOL [Concomitant]
  5. LIOTHYRONINE SODIUM [Concomitant]
  6. LEVOTHYROXINE SODIUM [Concomitant]
  7. AMLODIPINE [Concomitant]
  8. PANTOPRAZOLE SODIUM [Concomitant]
  9. ZOLPIDEM TARTRATE [Concomitant]
  10. PRAZEPAM [Concomitant]
     Route: 065
  11. MINIDRIL [Concomitant]
  12. LEXOMIL [Concomitant]
     Route: 065
  13. SOLU-MEDROL [Concomitant]
     Route: 065

REACTIONS (7)
  - ANXIETY [None]
  - CONVULSION [None]
  - HYPERTENSION [None]
  - HYPERTENSIVE ENCEPHALOPATHY [None]
  - PHOSPHENES [None]
  - SLEEP DISORDER [None]
  - STATUS EPILEPTICUS [None]
